FAERS Safety Report 6527066-7 (Version None)
Quarter: 2009Q4

REPORT INFORMATION
  Report Type: 
  Country: None (occurrence: None)
  Receive Date: 20091218
  Receipt Date: 20090930
  Transmission Date: 20100525
  Serious: No
  Sender: FDA-Public Use
  Company Number: 007685

PATIENT
  Sex: Female

DRUGS (8)
  1. SAMSCA [Suspect]
     Indication: HYPONATRAEMIA
     Dosage: 15 MG, ORAL ; 15 MG, SINGLE, ORAL
     Route: 048
     Dates: start: 20090929, end: 20090929
  2. SAMSCA [Suspect]
     Indication: HYPONATRAEMIA
     Dosage: 15 MG, ORAL ; 15 MG, SINGLE, ORAL
     Route: 048
     Dates: start: 20090930, end: 20090930
  3. TYLENOL USA (PARACETAMOL) [Concomitant]
  4. DULCOLAX (BISACOYL) [Concomitant]
  5. NEXIUM [Concomitant]
  6. ZOFRAN [Concomitant]
  7. ATIVAN [Concomitant]
  8. POTASSIUM CHLORIDE [Concomitant]

REACTIONS (1)
  - BLOOD SODIUM DECREASED [None]
